FAERS Safety Report 6385743-5 (Version None)
Quarter: 2009Q3

REPORT INFORMATION
  Report Type: 
  Country: None (occurrence: None)
  Receive Date: 20090929
  Receipt Date: 20090331
  Transmission Date: 20100115
  Serious: Yes (Life-Threatening, Hospitalization, Other)
  Sender: FDA-Public Use
  Company Number: LMI-2009-00061

PATIENT
  Age: 70 Year
  Sex: Female
  Weight: 77.1115 kg

DRUGS (10)
  1. DEFINITY [Suspect]
     Indication: CHEST PAIN
     Dosage: 1.3 ML DILUTED IN 8.7 ML NS (2 ML), INTRAVENOUS, 1 ML, INTRAVENOUS
     Route: 042
     Dates: start: 20090326, end: 20090326
  2. DEFINITY [Suspect]
     Indication: COMPUTERISED TOMOGRAM
     Dosage: 1.3 ML DILUTED IN 8.7 ML NS (2 ML), INTRAVENOUS, 1 ML, INTRAVENOUS
     Route: 042
     Dates: start: 20090326, end: 20090326
  3. DEFINITY [Suspect]
     Indication: CHEST PAIN
     Dosage: 1.3 ML DILUTED IN 8.7 ML NS (2 ML), INTRAVENOUS, 1 ML, INTRAVENOUS
     Route: 042
     Dates: start: 20090326, end: 20090326
  4. DEFINITY [Suspect]
     Indication: COMPUTERISED TOMOGRAM
     Dosage: 1.3 ML DILUTED IN 8.7 ML NS (2 ML), INTRAVENOUS, 1 ML, INTRAVENOUS
     Route: 042
     Dates: start: 20090326, end: 20090326
  5. ASPIRIN [Concomitant]
  6. HYDROCHLOROTHIAZIDE [Concomitant]
  7. CELEBREX [Concomitant]
  8. VYTORIN [Concomitant]
  9. BENICAR [Concomitant]
  10. RANITIDINE [Concomitant]

REACTIONS (1)
  - VENTRICULAR TACHYCARDIA [None]
